FAERS Safety Report 9958610 (Version 1)
Quarter: 2014Q1

REPORT INFORMATION
  Report Type: Spontaneous
  Country: US (occurrence: None)
  Receive Date: 20140124
  Receipt Date: 20140124
  Transmission Date: 20141002
  Serious: Yes (Hospitalization, Other)
  Sender: FDA-Public Use
  Company Number: 2010AP002495

PATIENT
  Age: 27 Year
  Sex: Female

DRUGS (1)
  1. METFORMIN HCL TABLETS [Suspect]
     Indication: POLYCYSTIC OVARIES

REACTIONS (2)
  - Lactic acidosis [None]
  - Overdose [None]
